FAERS Safety Report 25345657 (Version 2)
Quarter: 2025Q2

REPORT INFORMATION
  Report Type: Report from Study
  Country: ES (occurrence: ES)
  Receive Date: 20250522
  Receipt Date: 20250606
  Transmission Date: 20250717
  Serious: Yes (Hospitalization)
  Sender: ABBVIE
  Company Number: ES-ABBVIE-6287033

PATIENT
  Age: 55 Year
  Sex: Female
  Weight: 52 kg

DRUGS (9)
  1. RISANKIZUMAB [Suspect]
     Active Substance: RISANKIZUMAB
     Indication: Crohn^s disease
     Route: 058
     Dates: start: 20240822, end: 20241212
  2. RISANKIZUMAB [Suspect]
     Active Substance: RISANKIZUMAB
     Indication: Crohn^s disease
     Route: 042
     Dates: start: 20240528, end: 20240722
  3. DEFLAZACORT [Concomitant]
     Active Substance: DEFLAZACORT
     Indication: Crohn^s disease
     Route: 048
     Dates: start: 20241106, end: 20241112
  4. DEFLAZACORT [Concomitant]
     Active Substance: DEFLAZACORT
     Indication: Crohn^s disease
     Route: 048
     Dates: start: 20241113
  5. METAMIZOLE [Concomitant]
     Active Substance: METAMIZOLE
     Indication: Crohn^s disease
     Route: 048
     Dates: start: 2003
  6. ACETAMINOPHEN [Concomitant]
     Active Substance: ACETAMINOPHEN
     Indication: Crohn^s disease
     Route: 048
     Dates: start: 2003
  7. CALCIFEDIOL [Concomitant]
     Active Substance: CALCIFEDIOL
     Indication: Vitamin D deficiency
     Route: 048
     Dates: start: 201506
  8. CYANOCOBALAMIN [Concomitant]
     Active Substance: CYANOCOBALAMIN
     Indication: Vitamin B12 deficiency
     Route: 048
     Dates: start: 20230421
  9. FOLIC ACID [Concomitant]
     Active Substance: FOLIC ACID
     Indication: Folate deficiency
     Route: 048
     Dates: start: 201611

REACTIONS (1)
  - Intestinal obstruction [Not Recovered/Not Resolved]

NARRATIVE: CASE EVENT DATE: 20241101
